FAERS Safety Report 7161345-8 (Version None)
Quarter: 2010Q4

REPORT INFORMATION
  Report Type: 
  Country: None (occurrence: None)
  Receive Date: 20101210
  Receipt Date: 20101210
  Transmission Date: 20110411
  Serious: Yes (Hospitalization)
  Sender: FDA-Public Use
  Company Number: None

PATIENT
  Age: 61 Year
  Sex: Female
  Weight: 82.5547 kg

DRUGS (1)
  1. EXJADE [Suspect]
     Dosage: 125MG QD BUCCAL
     Route: 002
     Dates: start: 20101125, end: 20101206

REACTIONS (3)
  - DYSPNOEA [None]
  - FATIGUE [None]
  - PALPITATIONS [None]
